FAERS Safety Report 6436013-8 (Version None)
Quarter: 2009Q4

REPORT INFORMATION
  Report Type: 
  Country: None (occurrence: None)
  Receive Date: 20091111
  Receipt Date: 20091030
  Transmission Date: 20100525
  Serious: No
  Sender: FDA-Public Use
  Company Number: US-JNJFOC-20091101071

PATIENT
  Sex: Male
  Weight: 55.34 kg

DRUGS (3)
  1. DURAGESIC-100 [Suspect]
     Indication: BACK PAIN
     Dosage: NDC#: 50458-034-05
     Route: 062
     Dates: start: 19970101, end: 20091001
  2. FIORINAL NOS [Concomitant]
     Indication: PAIN
     Route: 065
  3. SOMA [Concomitant]
     Indication: PAIN
     Route: 048

REACTIONS (4)
  - DRUG DOSE OMISSION [None]
  - DRUG INEFFECTIVE [None]
  - PAIN [None]
  - WEIGHT INCREASED [None]
